FAERS Safety Report 5098201-5 (Version None)
Quarter: 2006Q3

REPORT INFORMATION
  Report Type: 
  Country: None (occurrence: None)
  Receive Date: 20060906
  Receipt Date: 20060531
  Transmission Date: 20061208
  Serious: No
  Sender: FDA-Public Use
  Company Number: US-GLAXOSMITHKLINE-A0607459A

PATIENT
  Age: 46 Year
  Sex: Female

DRUGS (3)
  1. REQUIP [Suspect]
     Indication: RESTLESS LEGS SYNDROME
     Route: 048
     Dates: start: 20060501
  2. NABUMETONE [Concomitant]
  3. LOVASTATIN [Concomitant]

REACTIONS (2)
  - DISABILITY [None]
  - PAIN [None]
